FAERS Safety Report 24156104 (Version 3)
Quarter: 2025Q1

REPORT INFORMATION
  Report Type: Spontaneous
  Country: US (occurrence: US)
  Receive Date: 20240731
  Receipt Date: 20250303
  Transmission Date: 20250409
  Serious: No
  Sender: ROCHE
  Company Number: US-ROCHE-10000040903

PATIENT
  Sex: Female
  Weight: 77.11 kg

DRUGS (2)
  1. OCREVUS [Suspect]
     Active Substance: OCRELIZUMAB
     Indication: Multiple sclerosis
     Route: 042
     Dates: start: 20240722
  2. ZEPBOUND [Concomitant]
     Active Substance: TIRZEPATIDE
     Indication: Weight decreased
     Dates: start: 20240708

REACTIONS (7)
  - Rash [Recovered/Resolved]
  - Dyspnoea [Unknown]
  - Urticaria [Unknown]
  - Pruritus [Unknown]
  - Heart rate increased [Unknown]
  - Headache [Unknown]
  - Throat tightness [Unknown]

NARRATIVE: CASE EVENT DATE: 20240722
